FAERS Safety Report 5066124-3 (Version None)
Quarter: 2006Q3

REPORT INFORMATION
  Report Type: 
  Country: None (occurrence: None)
  Receive Date: 20060725
  Receipt Date: 20060719
  Transmission Date: 20061208
  Serious: Yes (Other)
  Sender: FDA-Public Use
  Company Number: 2006089081

PATIENT
  Age: 21 Year
  Sex: Female

DRUGS (1)
  1. LISTERINE [Suspect]
     Indication: SUICIDE ATTEMPT
     Dosage: DRANK A BOTTLE, ORAL

REACTIONS (2)
  - INTENTIONAL DRUG MISUSE [None]
  - SUICIDE ATTEMPT [None]
